FAERS Safety Report 7813433-8 (Version None)
Quarter: 2011Q4

REPORT INFORMATION
  Report Type: 
  Country: None (occurrence: None)
  Receive Date: 20111014
  Receipt Date: 20111004
  Transmission Date: 20120403
  Serious: Yes (Hospitalization)
  Sender: FDA-Public Use
  Company Number: US-BIOGENIDEC-2011BI031644

PATIENT
  Age: 59 Year
  Sex: Male

DRUGS (4)
  1. AVONEX [Suspect]
     Route: 030
     Dates: start: 20080203
  2. AVONEX [Suspect]
     Indication: MULTIPLE SCLEROSIS
     Route: 030
     Dates: start: 20040715, end: 20050131
  3. TYLENOL-500 [Concomitant]
     Indication: PERIPHERAL ARTERIAL OCCLUSIVE DISEASE
     Route: 048
  4. AVONEX [Suspect]
     Route: 030
     Dates: start: 20050309, end: 20071101

REACTIONS (3)
  - PERIPHERAL VASCULAR DISORDER [None]
  - DEPRESSION [None]
  - ARTERIAL DISORDER [None]
